FAERS Safety Report 22278170 (Version 1)
Quarter: 2023Q2

REPORT INFORMATION
  Report Type: Report from Study
  Country: IN (occurrence: IN)
  Receive Date: 20230503
  Receipt Date: 20230503
  Transmission Date: 20230722
  Serious: Yes (Hospitalization, Other)
  Sender: FDA-Public Use
  Company Number: IN-002147023-NVSC2023IN096408

PATIENT
  Age: 58 Year
  Sex: Female

DRUGS (2)
  1. MYFORTIC [Suspect]
     Active Substance: MYCOPHENOLATE SODIUM
     Indication: Renal transplant
     Dosage: 360 MG, BID
     Route: 065
     Dates: start: 20200110
  2. NEORAL [Suspect]
     Active Substance: CYCLOSPORINE
     Indication: Renal transplant
     Dosage: 175 MG (100MG OD IN THE MORNING 75MG OD IN THE NIGHT)
     Route: 065
     Dates: start: 20200110

REACTIONS (4)
  - Febrile infection [Recovered/Resolved]
  - Urinary tract infection [Recovered/Resolved]
  - Blood glucose increased [Not Recovered/Not Resolved]
  - Vertigo [Recovered/Resolved]

NARRATIVE: CASE EVENT DATE: 20200113
